FAERS Safety Report 6342982-7 (Version None)
Quarter: 2009Q3

REPORT INFORMATION
  Report Type: 
  Country: None (occurrence: None)
  Receive Date: 20090908
  Receipt Date: 20090807
  Transmission Date: 20100115
  Serious: No
  Sender: FDA-Public Use
  Company Number: US-BAYER-200929527NA

PATIENT

DRUGS (1)
  1. BETAPACE [Suspect]
     Indication: DRUG USE FOR UNKNOWN INDICATION
     Dosage: UNIT DOSE: 80 MG

REACTIONS (2)
  - HOT FLUSH [None]
  - HYPERHIDROSIS [None]
